FAERS Safety Report 22397630 (Version 1)
Quarter: 2023Q2

REPORT INFORMATION
  Report Type: Report from Study
  Country: CA (occurrence: CA)
  Receive Date: 20230602
  Receipt Date: 20230602
  Transmission Date: 20230722
  Serious: Yes (Hospitalization)
  Sender: FDA-Public Use
  Company Number: CA-JNJFOC-20230560192

PATIENT
  Sex: Male

DRUGS (1)
  1. IMBRUVICA [Suspect]
     Active Substance: IBRUTINIB
     Indication: Waldenstrom^s macroglobulinaemia
     Route: 048
     Dates: start: 20221130

REACTIONS (6)
  - Myocardial infarction [Unknown]
  - Hypotension [Unknown]
  - Bronchitis [Unknown]
  - Limb injury [Unknown]
  - Fall [Unknown]
  - Urinary tract infection [Unknown]
